FAERS Safety Report 7094398-6 (Version None)
Quarter: 2010Q4

REPORT INFORMATION
  Report Type: 
  Country: None (occurrence: None)
  Receive Date: 20101110
  Receipt Date: 20101027
  Transmission Date: 20110411
  Serious: Yes (Other)
  Sender: FDA-Public Use
  Company Number: PHHY2010HR72604

PATIENT
  Age: 36 Year
  Sex: Male

DRUGS (6)
  1. CLOZAPINE [Suspect]
     Dosage: 200 MG/DAY
  2. VALPROIC ACID [Concomitant]
  3. PROMAZINE HYDROCHLORIDE [Concomitant]
     Dosage: 50 MG
  4. DIAZEPAM [Concomitant]
     Dosage: 10 MG
     Route: 030
  5. HALOPERIDOL [Concomitant]
  6. FLUPHENAZINE [Concomitant]

REACTIONS (16)
  - AGITATION [None]
  - BLOOD CREATINE PHOSPHOKINASE INCREASED [None]
  - DYSPHAGIA [None]
  - LIVER DISORDER [None]
  - MUSCLE RIGIDITY [None]
  - MUTISM [None]
  - NEUROLEPTIC MALIGNANT SYNDROME [None]
  - NUCHAL RIGIDITY [None]
  - PSYCHOTIC DISORDER [None]
  - PYREXIA [None]
  - RENAL IMPAIRMENT [None]
  - RHABDOMYOLYSIS [None]
  - SOMNOLENCE [None]
  - TACHYCARDIA [None]
  - TREMOR [None]
  - TRISMUS [None]
